FAERS Safety Report 14006083 (Version 2)
Quarter: 2017Q4

REPORT INFORMATION
  Report Type: Spontaneous
  Country: FR (occurrence: FR)
  Receive Date: 20170924
  Receipt Date: 20171006
  Transmission Date: 20180321
  Serious: Yes (Death, Hospitalization)
  Sender: FDA-Public Use
  Company Number: PHHY2017FR140131

PATIENT
  Age: 26 Year
  Weight: 65 kg

DRUGS (6)
  1. ZYKADIA [Suspect]
     Active Substance: CERITINIB
     Indication: METASTATIC GASTRIC CANCER
     Dosage: UNK
     Route: 065
     Dates: start: 20170807, end: 20170808
  2. ZYKADIA [Suspect]
     Active Substance: CERITINIB
     Indication: METASTASES TO CENTRAL NERVOUS SYSTEM
  3. ZYKADIA [Suspect]
     Active Substance: CERITINIB
     Indication: METASTATIC BRONCHIAL CARCINOMA
  4. ZYKADIA [Suspect]
     Active Substance: CERITINIB
     Indication: METASTASES TO BONE
  5. VALIUM [Concomitant]
     Active Substance: DIAZEPAM
     Indication: PRODUCT USED FOR UNKNOWN INDICATION
     Route: 042
  6. MORPHINE [Concomitant]
     Active Substance: MORPHINE
     Indication: PRODUCT USED FOR UNKNOWN INDICATION
     Route: 042

REACTIONS (4)
  - Metastatic gastric cancer [Fatal]
  - General physical health deterioration [Fatal]
  - Product use in unapproved indication [Unknown]
  - Metastases to central nervous system [Fatal]

NARRATIVE: CASE EVENT DATE: 20170807
